FAERS Safety Report 21869355 (Version 1)
Quarter: 2023Q1

REPORT INFORMATION
  Report Type: Report from Study
  Country: US (occurrence: US)
  Receive Date: 20230117
  Receipt Date: 20230117
  Transmission Date: 20230418
  Serious: Yes (Hospitalization)
  Sender: FDA-Public Use
  Company Number: ENDG22-00057

PATIENT
  Age: 5 Year
  Sex: Male
  Weight: 23.8 kg

DRUGS (5)
  1. METHOTREXATE SODIUM [Suspect]
     Active Substance: METHOTREXATE SODIUM
     Indication: Precursor B-lymphoblastic lymphoma
     Dosage: 15 MG, WEEKLY
     Route: 048
     Dates: start: 20180904
  2. RUXOLITINIB [Suspect]
     Active Substance: RUXOLITINIB
     Indication: Precursor B-lymphoblastic lymphoma
     Dosage: 40 MG, BID
     Route: 065
     Dates: start: 20181008
  3. MERCAPTOPURINE [Suspect]
     Active Substance: MERCAPTOPURINE
     Indication: Precursor B-lymphoblastic lymphoma
     Dosage: 50MG M-WED, 25 MG TH-SUN
     Route: 065
     Dates: start: 20181008
  4. VINCRISTINE [Suspect]
     Active Substance: VINCRISTINE
     Indication: Precursor B-lymphoblastic lymphoma
     Dosage: 1.2 MG, SINGLE
     Route: 042
     Dates: start: 20181022
  5. PREDNISONE [Suspect]
     Active Substance: PREDNISONE
     Indication: Precursor B-lymphoblastic lymphoma
     Dosage: 16.5 MG, UNKNOWN
     Route: 048
     Dates: start: 20180904

REACTIONS (1)
  - Pyrexia [None]

NARRATIVE: CASE EVENT DATE: 20211207
